FAERS Safety Report 9257880 (Version 1)
Quarter: 2013Q2

REPORT INFORMATION
  Report Type: Report from Study
  Country: MX (occurrence: MX)
  Receive Date: 20130426
  Receipt Date: 20130426
  Transmission Date: 20140414
  Serious: Yes (Death)
  Sender: FDA-Public Use
  Company Number: MX-ASTELLAS-2013US004375

PATIENT
  Age: 67 Year
  Sex: Male
  Weight: 65 kg

DRUGS (6)
  1. ERLOTINIB TABLET [Suspect]
     Indication: LUNG NEOPLASM MALIGNANT
     Dosage: UNK
     Route: 048
     Dates: start: 2006, end: 2008
  2. ERLOTINIB TABLET [Suspect]
     Dosage: 150 MG, UID/QD
     Route: 048
     Dates: start: 201204
  3. PREGABALIN [Suspect]
     Indication: PAIN
     Dosage: 1 DF, PRN
     Route: 048
     Dates: start: 201204
  4. PENTOXIFYLLINE [Concomitant]
     Indication: HAEMORRHOIDS
     Dosage: 1 DF, UID/QD
     Route: 048
     Dates: start: 2010
  5. SENNOSIDES A+B [Concomitant]
     Indication: CONSTIPATION
     Dosage: 1 DF, UID/QD
     Route: 048
     Dates: start: 2010
  6. GEFITINIB [Concomitant]
     Indication: PRODUCT USED FOR UNKNOWN INDICATION
     Dosage: 1 DF, Q8 HOURS
     Route: 048
     Dates: start: 201202

REACTIONS (4)
  - Death [Fatal]
  - Rash [Not Recovered/Not Resolved]
  - Dry skin [Not Recovered/Not Resolved]
  - Pain [Recovering/Resolving]
